FAERS Safety Report 5038206-3 (Version None)
Quarter: 2006Q2

REPORT INFORMATION
  Report Type: 
  Country: None (occurrence: None)
  Receive Date: 20060626
  Receipt Date: 20060614
  Transmission Date: 20061013
  Serious: Yes (Death)
  Sender: FDA-Public Use
  Company Number: 055

PATIENT
  Sex: Male
  Weight: 65.7716 kg

DRUGS (7)
  1. FAZACLO ODT [Suspect]
     Indication: SCHIZOAFFECTIVE DISORDER
     Dosage: 50 MG PO DAILY
     Route: 048
     Dates: start: 20050915, end: 20060406
  2. BACTRIM DS [Concomitant]
  3. REGLAN [Concomitant]
  4. DIOVAN [Concomitant]
  5. FLEXERIL [Concomitant]
  6. FERROUS SULFATE TAB [Concomitant]
  7. ZINC [Concomitant]

REACTIONS (1)
  - RESPIRATORY FAILURE [None]
